FAERS Safety Report 11018776 (Version 2)
Quarter: 2015Q2

REPORT INFORMATION
  Report Type: Spontaneous
  Country: US (occurrence: US)
  Receive Date: 20150412
  Receipt Date: 20150524
  Transmission Date: 20150821
  Serious: Yes (Other)
  Sender: FDA-Public Use
  Company Number: US-JNJFOC-20140716247

PATIENT

DRUGS (1)
  1. DOXORUBICIN HYDROCHLORIDE. [Suspect]
     Active Substance: DOXORUBICIN HYDROCHLORIDE
     Indication: ACUTE LYMPHOCYTIC LEUKAEMIA
     Dosage: MEAN DOSE: 30 MG/M2/DOSE; CUMILATIVE DOSE: 352 MG/M2
     Route: 042

REACTIONS (3)
  - Product use issue [Unknown]
  - Restrictive cardiomyopathy [Unknown]
  - Congestive cardiomyopathy [Unknown]
